FAERS Safety Report 19642968 (Version 10)
Quarter: 2023Q2

REPORT INFORMATION
  Report Type: Report from Study
  Country: US (occurrence: US)
  Receive Date: 20210730
  Receipt Date: 20230428
  Transmission Date: 20230722
  Serious: Yes (Hospitalization)
  Sender: FDA-Public Use
  Company Number: US-TEVA-2021-US-1932522

PATIENT
  Age: 18 Year
  Sex: Male
  Weight: 71.5 kg

DRUGS (11)
  1. METHOTREXATE [Suspect]
     Active Substance: METHOTREXATE
     Indication: Acute lymphocytic leukaemia
     Dosage: 35 MILLIGRAM, WEEKLY
     Route: 048
     Dates: start: 20200522, end: 20210522
  2. METHOTREXATE [Suspect]
     Active Substance: METHOTREXATE
     Dosage: 35 MILLIGRAM, WEEKLY
     Route: 048
     Dates: start: 20210622
  3. PREDNISONE [Suspect]
     Active Substance: PREDNISONE
     Indication: Acute lymphocytic leukaemia
     Dosage: 70 MILLIGRAM DAILY; BID X5
     Route: 048
     Dates: start: 20200522
  4. VINCRISTINE [Suspect]
     Active Substance: VINCRISTINE
     Indication: Acute lymphocytic leukaemia
     Dosage: 2 MILLIGRAM, ONCE;
     Route: 042
     Dates: start: 20200522
  5. MERCAPTOPURINE [Suspect]
     Active Substance: MERCAPTOPURINE
     Indication: Acute lymphocytic leukaemia
     Dosage: 125 MILLIGRAM DAILY; 125 MILLIGRAM, QD X5; 150 MILLIGRAM, QD X2
     Route: 048
     Dates: start: 20200522, end: 20210522
  6. MERCAPTOPURINE [Suspect]
     Active Substance: MERCAPTOPURINE
     Dosage: 150 MILLIGRAM DAILY; 125 MG QD/X5 AND 150 MG QD/X2
     Route: 048
     Dates: start: 20210622
  7. RUXOLITINIB [Suspect]
     Active Substance: RUXOLITINIB
     Indication: Acute lymphocytic leukaemia
     Dosage: 170 MILLIGRAM DAILY; 85 MILLIGRAM, BID X 14
     Route: 048
     Dates: start: 20200522
  8. SULFAMETHOXAZOLE\TRIMETHOPRIM [Concomitant]
     Active Substance: SULFAMETHOXAZOLE\TRIMETHOPRIM
     Indication: Product used for unknown indication
     Dates: start: 201707, end: 20200929
  9. DAPSONE [Concomitant]
     Active Substance: DAPSONE
     Indication: Product used for unknown indication
     Dates: start: 20200929, end: 20201013
  10. VALACYCLOVIR [Concomitant]
     Active Substance: VALACYCLOVIR HYDROCHLORIDE
     Indication: Product used for unknown indication
     Dates: start: 20200528
  11. ATOVAQUONE [Concomitant]
     Active Substance: ATOVAQUONE
     Indication: Product used for unknown indication
     Dates: start: 20201013

REACTIONS (4)
  - Sepsis [Recovered/Resolved]
  - Pneumocystis jirovecii pneumonia [Recovered/Resolved]
  - Acute respiratory distress syndrome [Recovered/Resolved]
  - Haemoglobin decreased [Recovered/Resolved]

NARRATIVE: CASE EVENT DATE: 20210605
